FAERS Safety Report 8852541 (Version 2)
Quarter: 2013Q2

REPORT INFORMATION
  Report Type: Report from Study
  Country: JP (occurrence: JP)
  Receive Date: 20121022
  Receipt Date: 20130418
  Transmission Date: 20140414
  Serious: Yes (Other)
  Sender: FDA-Public Use
  Company Number: PHHY2012JP053597

PATIENT
  Age: 41 Year
  Sex: Female

DRUGS (8)
  1. FTY 720 [Suspect]
     Indication: MULTIPLE SCLEROSIS
     Dosage: 0.5 MG, QD
     Route: 048
     Dates: start: 20120227, end: 20120530
  2. GABAPENTIN [Concomitant]
     Dosage: 1200 MG, DAILY
     Route: 048
  3. LOXONIN [Concomitant]
     Dosage: 180 MG, DAILY
     Route: 048
  4. MUCOSTA [Concomitant]
     Dosage: 300 MG, DAILY
     Route: 048
  5. BAYNAS [Concomitant]
     Dosage: 150 MG, DAILY
     Route: 048
  6. KLARICID [Concomitant]
     Dosage: 200 MG, DAILY
     Route: 048
  7. MYSLEE [Concomitant]
     Dosage: 5 MG, DAILY
     Route: 048
  8. RIVOTRIL [Concomitant]
     Dosage: 0.5 MG, DAILY
     Route: 048

REACTIONS (1)
  - Macular oedema [Recovered/Resolved]
